FAERS Safety Report 5862843-7 (Version None)
Quarter: 2008Q3

REPORT INFORMATION
  Report Type: 
  Country: None (occurrence: None)
  Receive Date: 20080828
  Receipt Date: 20080822
  Transmission Date: 20090109
  Serious: Yes (Hospitalization)
  Sender: FDA-Public Use
  Company Number: A0709953A

PATIENT
  Age: 57 Year
  Sex: Female
  Weight: 70 kg

DRUGS (3)
  1. AVANDIA [Suspect]
     Dosage: 2MG PER DAY
     Route: 048
     Dates: start: 20060417, end: 20070201
  2. AVANDAMET [Suspect]
     Route: 048
     Dates: start: 20050902, end: 20060301
  3. METFORMIN HCL [Concomitant]
     Dates: start: 20060316

REACTIONS (1)
  - MYOCARDIAL INFARCTION [None]
